FAERS Safety Report 9893095 (Version 1)
Quarter: 2014Q1

REPORT INFORMATION
  Report Type: Spontaneous
  Country: US (occurrence: US)
  Receive Date: 20140213
  Receipt Date: 20140213
  Transmission Date: 20141002
  Serious: Yes (Other)
  Sender: FDA-Public Use
  Company Number: US-BRISTOL-MYERS SQUIBB COMPANY-20143780

PATIENT
  Age: 88 Year
  Sex: Female
  Weight: 39.45 kg

DRUGS (1)
  1. ELIQUIS [Suspect]

REACTIONS (1)
  - Hepatic failure [Unknown]
